FAERS Safety Report 9333112 (Version 1)
Quarter: 2013Q2

REPORT INFORMATION
  Report Type: Spontaneous
  Country: JP (occurrence: JP)
  Receive Date: 20130606
  Receipt Date: 20130606
  Transmission Date: 20140414
  Serious: Yes (Death)
  Sender: FDA-Public Use
  Company Number: JP-ELI_LILLY_AND_COMPANY-JP201305001746

PATIENT
  Age: 81 Year
  Sex: Female

DRUGS (1)
  1. ZYPREXA [Suspect]
     Indication: AGITATION
     Route: 048

REACTIONS (3)
  - Death [Fatal]
  - Dyspnoea [Not Recovered/Not Resolved]
  - Off label use [Unknown]
